FAERS Safety Report 21901383 (Version 2)
Quarter: 2023Q1

REPORT INFORMATION
  Report Type: Spontaneous
  Country: US (occurrence: US)
  Receive Date: 20230123
  Receipt Date: 20230131
  Transmission Date: 20230417
  Serious: No
  Sender: FDA-Public Use
  Company Number: US-SUNOVION-2023SUN000113AA

PATIENT
  Sex: Male

DRUGS (4)
  1. APTIOM [Suspect]
     Active Substance: ESLICARBAZEPINE ACETATE
     Indication: Seizure
     Dosage: 400 MG
     Route: 048
     Dates: start: 20230104, end: 20230113
  2. APTIOM [Suspect]
     Active Substance: ESLICARBAZEPINE ACETATE
     Dosage: 800 MG
     Route: 048
     Dates: start: 20230113, end: 202301
  3. KEPPRA [Concomitant]
     Active Substance: LEVETIRACETAM
     Indication: Seizure
     Dosage: 750 MG
     Route: 065
  4. KEPPRA [Concomitant]
     Active Substance: LEVETIRACETAM
     Dosage: 375 MG
     Route: 065

REACTIONS (9)
  - Anxiety [Unknown]
  - Paraesthesia [Unknown]
  - Feeling abnormal [Unknown]
  - Tremor [Unknown]
  - Headache [Unknown]
  - Asthenia [Unknown]
  - Dizziness [Unknown]
  - Insomnia [Unknown]
  - Treatment noncompliance [Unknown]

NARRATIVE: CASE EVENT DATE: 20230101
